FAERS Safety Report 18107399 (Version 1)
Quarter: 2020Q3

REPORT INFORMATION
  Report Type: Spontaneous
  Country: US (occurrence: US)
  Receive Date: 20200803
  Receipt Date: 20200803
  Transmission Date: 20201103
  Serious: Yes (Other)
  Sender: FDA-Public Use
  Company Number: US-JNJFOC-20200742052

PATIENT
  Age: 65 Year
  Sex: Male
  Weight: 89.44 kg

DRUGS (1)
  1. XARELTO [Suspect]
     Active Substance: RIVAROXABAN
     Indication: DEEP VEIN THROMBOSIS
     Route: 048

REACTIONS (2)
  - International normalised ratio abnormal [Recovered/Resolved with Sequelae]
  - Foot operation [Unknown]

NARRATIVE: CASE EVENT DATE: 20200728
